FAERS Safety Report 23124447 (Version 1)
Quarter: 2023Q4

REPORT INFORMATION
  Report Type: Spontaneous
  Country: US (occurrence: None)
  Receive Date: 20231027
  Receipt Date: 20231027
  Transmission Date: 20240109
  Serious: Yes (Hospitalization)
  Sender: FDA-Public Use
  Company Number: None

PATIENT
  Age: 58 Year
  Sex: Female

DRUGS (21)
  1. RINVOQ [Suspect]
     Active Substance: UPADACITINIB
     Indication: Crohn^s disease
     Dosage: OTHER FREQUENCY : EVERY 8 WEEKS;?
     Route: 048
     Dates: start: 20230907
  2. ALBUTEROL AER HFA [Concomitant]
  3. AZITHROMYCIN [Concomitant]
     Active Substance: AZITHROMYCIN
  4. BENZONATATE [Concomitant]
  5. BENZONATATE [Concomitant]
     Active Substance: BENZONATATE
  6. CYCLOBENZAPRINE [Concomitant]
     Active Substance: CYCLOBENZAPRINE
  7. DIAZEPAM [Concomitant]
     Active Substance: DIAZEPAM
  8. DULOXETINE [Concomitant]
     Active Substance: DULOXETINE
  9. DULOXETINE [Concomitant]
     Active Substance: DULOXETINE
  10. HUMIRA [Concomitant]
     Active Substance: ADALIMUMAB
  11. HYDROXYL HCL [Concomitant]
  12. METHYLPREDNISOLONE [Concomitant]
     Active Substance: METHYLPREDNISOLONE
  13. MODAFINIL [Concomitant]
     Active Substance: MODAFINIL
  14. MODAFINIL [Concomitant]
     Active Substance: MODAFINIL
  15. ONDANSETRON [Concomitant]
     Active Substance: ONDANSETRON
  16. OXYCODONE AND ACETAMINOPHEN [Concomitant]
     Active Substance: ACETAMINOPHEN\OXYCODONE HYDROCHLORIDE
  17. PANTOPRAZOLE [Concomitant]
     Active Substance: PANTOPRAZOLE
  18. PREDNISONE [Concomitant]
     Active Substance: PREDNISONE
  19. PREDNISONE [Concomitant]
     Active Substance: PREDNISONE
  20. PROMETHAZINE SOL DM [Concomitant]
  21. SUCRALFATE [Concomitant]

REACTIONS (2)
  - Nausea [None]
  - Diarrhoea [None]

NARRATIVE: CASE EVENT DATE: 20231025
